FAERS Safety Report 5433838-2 (Version None)
Quarter: 2007Q3

REPORT INFORMATION
  Report Type: 
  Country: None (occurrence: None)
  Receive Date: 20070831
  Receipt Date: 20070817
  Transmission Date: 20080115
  Serious: Yes (Hospitalization)
  Sender: FDA-Public Use
  Company Number: US-BAYER-200712587BWH

PATIENT
  Age: 86 Year
  Sex: Female

DRUGS (2)
  1. NIFEDIPINE [Suspect]
     Indication: DRUG USE FOR UNKNOWN INDICATION
     Dates: start: 20070101, end: 20070101
  2. NIFEDIPINE [Concomitant]
     Indication: DRUG USE FOR UNKNOWN INDICATION

REACTIONS (6)
  - ADVERSE EVENT [None]
  - BLOOD SODIUM DECREASED [None]
  - DEPRESSED MOOD [None]
  - DYSKINESIA [None]
  - MALAISE [None]
  - MUSCULAR WEAKNESS [None]
